FAERS Safety Report 8432114-3 (Version None)
Quarter: 2012Q2

REPORT INFORMATION
  Report Type: 
  Country: None (occurrence: None)
  Receive Date: 20120613
  Receipt Date: 20120606
  Transmission Date: 20120825
  Serious: Yes (Death)
  Sender: FDA-Public Use
  Company Number: US-CELGENEUS-163-21880-12061258

PATIENT
  Sex: Male

DRUGS (11)
  1. HYDROCHLOROTHIAZIDE [Concomitant]
     Dosage: 50 MILLIGRAM
     Route: 048
  2. VITAMIN B-12 [Concomitant]
     Dosage: 1000 MICROGRAM
     Route: 048
  3. ASPIRIN [Concomitant]
     Dosage: 325 MILLIGRAM
     Route: 048
  4. DEXAMETHASONE [Concomitant]
     Dosage: .5 MILLIGRAM
     Route: 048
  5. REVLIMID [Suspect]
     Dosage: 10 MILLIGRAM
     Route: 048
     Dates: start: 20111101, end: 20120101
  6. MULTI-VITAMINS [Concomitant]
     Route: 048
  7. REVLIMID [Suspect]
     Indication: MULTIPLE MYELOMA
     Dosage: 15 MILLIGRAM
     Route: 048
     Dates: start: 20100724, end: 20111101
  8. AMLODIPINE [Concomitant]
     Dosage: 2.5 MILLIGRAM
     Route: 048
  9. HYDRALAZINE HYDROCHLORIDE [Concomitant]
     Dosage: 10 MILLIGRAM
     Route: 048
  10. LORAZEPAM [Concomitant]
     Dosage: .5 MILLIGRAM
     Route: 048
  11. ZOMETA [Concomitant]
     Dosage: 4MG/5ML
     Route: 050

REACTIONS (1)
  - DEATH [None]
